FAERS Safety Report 23666175 (Version 2)
Quarter: 2024Q2

REPORT INFORMATION
  Report Type: Spontaneous
  Country: US (occurrence: US)
  Receive Date: 20240324
  Receipt Date: 20240413
  Transmission Date: 20240715
  Serious: Yes (Other)
  Sender: FDA-Public Use
  Company Number: US-AUROBINDO-AUR-APL-2024-012475

PATIENT
  Age: 61 Year
  Sex: Male

DRUGS (3)
  1. DANTROLENE [Suspect]
     Active Substance: DANTROLENE
     Indication: Neuroleptic malignant syndrome
     Dosage: UNK
     Route: 065
  2. TRAZODONE [Concomitant]
     Active Substance: TRAZODONE HYDROCHLORIDE
     Indication: Product used for unknown indication
     Dosage: UNK
     Route: 065
  3. HEMIN [Concomitant]
     Active Substance: HEMIN
     Indication: Porphyria acute
     Dosage: UNK
     Route: 065

REACTIONS (1)
  - Drug ineffective [Unknown]
